FAERS Safety Report 19772115 (Version 1)
Quarter: 2021Q3

REPORT INFORMATION
  Report Type: Other
  Country: GB (occurrence: GB)
  Receive Date: 20210901
  Receipt Date: 20210901
  Transmission Date: 20211014
  Serious: Yes (Other)
  Sender: FDA-Public Use
  Company Number: GB-ROCHE-2897690

PATIENT

DRUGS (1)
  1. TOCILIZUMAB. [Suspect]
     Active Substance: TOCILIZUMAB
     Indication: COVID-19
     Route: 042

REACTIONS (5)
  - Enterococcal infection [Unknown]
  - Staphylococcal infection [Unknown]
  - Bacterial infection [Unknown]
  - Sepsis [Unknown]
  - Off label use [Unknown]
